FAERS Safety Report 8506427-0 (Version None)
Quarter: 2012Q3

REPORT INFORMATION
  Report Type: 
  Country: None (occurrence: None)
  Receive Date: 20120702
  Receipt Date: 20120619
  Transmission Date: 20120928
  Serious: Yes (Other)
  Sender: FDA-Public Use
  Company Number: DSA_58114_2012

PATIENT
  Sex: Female

DRUGS (4)
  1. TAMOXIFEN CITRATE [Suspect]
     Indication: BREAST CANCER
     Dosage: DF DAILY
  2. METHOTREXATE [Suspect]
     Indication: BREAST CANCER
     Dosage: 40 MG/M2, INTRAVENOUS
     Route: 042
  3. CYCLOPHOSPHAMIDE [Suspect]
     Indication: BREAST CANCER
     Dosage: 100 MG/M2, ORAL
     Route: 048
  4. FLUOROURACIL [Suspect]
     Indication: BREAST CANCER
     Dosage: 600 MG/M2, INTRAVENOUS
     Route: 042

REACTIONS (2)
  - INFECTION [None]
  - TOXICITY TO VARIOUS AGENTS [None]
